FAERS Safety Report 5895295-1 (Version None)
Quarter: 2008Q3

REPORT INFORMATION
  Report Type: 
  Country: None (occurrence: None)
  Receive Date: 20080924
  Receipt Date: 20080911
  Transmission Date: 20090109
  Serious: Yes (Other)
  Sender: FDA-Public Use
  Company Number: US-PFIZER INC-2008079506

PATIENT
  Sex: Female

DRUGS (2)
  1. DEPO-PROVERA SUSPENSION/INJ [Suspect]
     Indication: CONTRACEPTION
     Dates: start: 19980701, end: 19980701
  2. DEPO-PROVERA SUSPENSION/INJ [Suspect]
     Dates: start: 20050501, end: 20050501

REACTIONS (1)
  - OSTEOARTHRITIS [None]
